FAERS Safety Report 6998479-4 (Version None)
Quarter: 2010Q3

REPORT INFORMATION
  Report Type: 
  Country: None (occurrence: None)
  Receive Date: 20100920
  Receipt Date: 20091029
  Transmission Date: 20110219
  Serious: Yes (Other)
  Sender: FDA-Public Use
  Company Number: US-ASTRAZENECA-2007UW12542

PATIENT
  Age: 343 Month
  Sex: Female
  Weight: 67.1 kg

DRUGS (13)
  1. SEROQUEL [Suspect]
     Indication: SLEEP DISORDER
     Dosage: 100-200 MG
     Route: 048
     Dates: start: 20010410, end: 20021201
  2. SEROQUEL [Suspect]
     Indication: ABNORMAL BEHAVIOUR
     Dosage: 100-200 MG
     Route: 048
     Dates: start: 20010410, end: 20021201
  3. SEROQUEL [Suspect]
     Indication: MENTAL DISORDER
     Dosage: 100-200 MG
     Route: 048
     Dates: start: 20010410, end: 20021201
  4. SEROQUEL [Suspect]
     Indication: DEPRESSION
     Dosage: 100-200 MG
     Route: 048
     Dates: start: 20010410, end: 20021201
  5. SEROQUEL [Suspect]
     Indication: BIPOLAR DISORDER
     Dosage: 100-200 MG
     Route: 048
     Dates: start: 20010410, end: 20021201
  6. SEROQUEL [Suspect]
     Indication: INSOMNIA
     Dosage: 100-200 MG
     Route: 048
     Dates: start: 20010410, end: 20021201
  7. RISPERDAL [Concomitant]
     Indication: BIPOLAR DISORDER
     Dates: start: 20040501
  8. RISPERDAL [Concomitant]
     Indication: DEPRESSION
     Dates: start: 20040501
  9. CLONAZEPAM [Concomitant]
     Indication: DEPRESSION
  10. ABILIFY [Concomitant]
     Dates: start: 20000101
  11. DEPAKOTE [Concomitant]
     Dates: start: 20010101, end: 20020101
  12. LEXAPRO [Concomitant]
     Dates: start: 20020101
  13. PROZAC [Concomitant]
     Dates: start: 19990101, end: 20010101

REACTIONS (4)
  - DIABETES MELLITUS [None]
  - HYPOGAMMAGLOBULINAEMIA [None]
  - HYPOGLYCAEMIA [None]
  - SUICIDE ATTEMPT [None]
